FAERS Safety Report 25535831 (Version 1)
Quarter: 2025Q3

REPORT INFORMATION
  Report Type: Spontaneous
  Country: ZA (occurrence: ZA)
  Receive Date: 20250709
  Receipt Date: 20250709
  Transmission Date: 20251020
  Serious: Yes (Other)
  Sender: MYLAN
  Company Number: ZA-MYLANLABS-2025M1057003

PATIENT
  Age: 65 Year
  Sex: Male

DRUGS (32)
  1. ATORVASTATIN [Suspect]
     Active Substance: ATORVASTATIN
     Indication: Product used for unknown indication
     Dosage: 40 MILLIGRAM, PM
  2. ATORVASTATIN [Suspect]
     Active Substance: ATORVASTATIN
     Dosage: 40 MILLIGRAM, PM
     Route: 065
  3. ATORVASTATIN [Suspect]
     Active Substance: ATORVASTATIN
     Dosage: 40 MILLIGRAM, PM
     Route: 065
  4. ATORVASTATIN [Suspect]
     Active Substance: ATORVASTATIN
     Dosage: 40 MILLIGRAM, PM
  5. ASPIRIN\CLOPIDOGREL BISULFATE [Suspect]
     Active Substance: ASPIRIN\CLOPIDOGREL BISULFATE
     Indication: Product used for unknown indication
     Dosage: 75 MILLIGRAM, QD
  6. ASPIRIN\CLOPIDOGREL BISULFATE [Suspect]
     Active Substance: ASPIRIN\CLOPIDOGREL BISULFATE
     Dosage: 75 MILLIGRAM, QD
     Route: 065
  7. ASPIRIN\CLOPIDOGREL BISULFATE [Suspect]
     Active Substance: ASPIRIN\CLOPIDOGREL BISULFATE
     Dosage: 75 MILLIGRAM, QD
     Route: 065
  8. ASPIRIN\CLOPIDOGREL BISULFATE [Suspect]
     Active Substance: ASPIRIN\CLOPIDOGREL BISULFATE
     Dosage: 75 MILLIGRAM, QD
  9. APIXABAN [Suspect]
     Active Substance: APIXABAN
     Indication: Product used for unknown indication
     Dosage: 5 MILLIGRAM, BID
  10. APIXABAN [Suspect]
     Active Substance: APIXABAN
     Dosage: 5 MILLIGRAM, BID
     Route: 065
  11. APIXABAN [Suspect]
     Active Substance: APIXABAN
     Dosage: 5 MILLIGRAM, BID
     Route: 065
  12. APIXABAN [Suspect]
     Active Substance: APIXABAN
     Dosage: 5 MILLIGRAM, BID
  13. BISOPROLOL FUMARATE [Suspect]
     Active Substance: BISOPROLOL FUMARATE
     Indication: Product used for unknown indication
     Dosage: 5 MILLIGRAM, QD
  14. BISOPROLOL FUMARATE [Suspect]
     Active Substance: BISOPROLOL FUMARATE
     Dosage: 5 MILLIGRAM, QD
     Route: 065
  15. BISOPROLOL FUMARATE [Suspect]
     Active Substance: BISOPROLOL FUMARATE
     Dosage: 5 MILLIGRAM, QD
     Route: 065
  16. BISOPROLOL FUMARATE [Suspect]
     Active Substance: BISOPROLOL FUMARATE
     Dosage: 5 MILLIGRAM, QD
  17. PERINDOPRIL [Suspect]
     Active Substance: PERINDOPRIL
     Indication: Product used for unknown indication
     Dosage: 2.5 MILLIGRAM, QD
  18. PERINDOPRIL [Suspect]
     Active Substance: PERINDOPRIL
     Dosage: 2.5 MILLIGRAM, QD
     Route: 065
  19. PERINDOPRIL [Suspect]
     Active Substance: PERINDOPRIL
     Dosage: 2.5 MILLIGRAM, QD
     Route: 065
  20. PERINDOPRIL [Suspect]
     Active Substance: PERINDOPRIL
     Dosage: 2.5 MILLIGRAM, QD
  21. PANTOPRAZOLE SODIUM [Suspect]
     Active Substance: PANTOPRAZOLE SODIUM
     Indication: Product used for unknown indication
     Dosage: 40 MILLIGRAM, QD
  22. PANTOPRAZOLE SODIUM [Suspect]
     Active Substance: PANTOPRAZOLE SODIUM
     Dosage: 40 MILLIGRAM, QD
     Route: 065
  23. PANTOPRAZOLE SODIUM [Suspect]
     Active Substance: PANTOPRAZOLE SODIUM
     Dosage: 40 MILLIGRAM, QD
     Route: 065
  24. PANTOPRAZOLE SODIUM [Suspect]
     Active Substance: PANTOPRAZOLE SODIUM
     Dosage: 40 MILLIGRAM, QD
  25. PIMECLONE HYDROCHLORIDE [Suspect]
     Active Substance: PIMECLONE HYDROCHLORIDE
     Indication: Product used for unknown indication
     Dosage: 25 MILLIGRAM, QD
  26. PIMECLONE HYDROCHLORIDE [Suspect]
     Active Substance: PIMECLONE HYDROCHLORIDE
     Dosage: 25 MILLIGRAM, QD
     Route: 065
  27. PIMECLONE HYDROCHLORIDE [Suspect]
     Active Substance: PIMECLONE HYDROCHLORIDE
     Dosage: 25 MILLIGRAM, QD
     Route: 065
  28. PIMECLONE HYDROCHLORIDE [Suspect]
     Active Substance: PIMECLONE HYDROCHLORIDE
     Dosage: 25 MILLIGRAM, QD
  29. FLUTICASONE PROPIONATE\SALMETEROL XINAFOATE [Suspect]
     Active Substance: FLUTICASONE PROPIONATE\SALMETEROL XINAFOATE
     Indication: Product used for unknown indication
     Dosage: UNK, QD (25/125 MICROGRAM, 1 INHALATION)
  30. FLUTICASONE PROPIONATE\SALMETEROL XINAFOATE [Suspect]
     Active Substance: FLUTICASONE PROPIONATE\SALMETEROL XINAFOATE
     Dosage: UNK, QD (25/125 MICROGRAM, 1 INHALATION)
     Route: 055
  31. FLUTICASONE PROPIONATE\SALMETEROL XINAFOATE [Suspect]
     Active Substance: FLUTICASONE PROPIONATE\SALMETEROL XINAFOATE
     Dosage: UNK, QD (25/125 MICROGRAM, 1 INHALATION)
     Route: 055
  32. FLUTICASONE PROPIONATE\SALMETEROL XINAFOATE [Suspect]
     Active Substance: FLUTICASONE PROPIONATE\SALMETEROL XINAFOATE
     Dosage: UNK, QD (25/125 MICROGRAM, 1 INHALATION)

REACTIONS (3)
  - Angina pectoris [Unknown]
  - Dyspnoea [Unknown]
  - Overweight [Unknown]
